FAERS Safety Report 8012679-6 (Version None)
Quarter: 2011Q4

REPORT INFORMATION
  Report Type: 
  Country: None (occurrence: None)
  Receive Date: 20111223
  Receipt Date: 20111223
  Transmission Date: 20120403
  Serious: Yes (Hospitalization)
  Sender: FDA-Public Use
  Company Number: None

PATIENT
  Sex: Male
  Weight: 104.7809 kg

DRUGS (3)
  1. HUMIRA [Suspect]
     Indication: RHEUMATOID ARTHRITIS
     Dosage: 40 MG EVERY 2 WEEKS SUBC.
     Route: 058
     Dates: start: 20090820, end: 20100830
  2. IZONIACIDE [Concomitant]
  3. METROTREXATE [Concomitant]

REACTIONS (1)
  - COLON CANCER [None]
